FAERS Safety Report 13516740 (Version 1)
Quarter: 2017Q2

REPORT INFORMATION
  Report Type: Spontaneous
  Country: US (occurrence: US)
  Receive Date: 20170504
  Receipt Date: 20170504
  Transmission Date: 20170830
  Serious: No
  Sender: FDA-Public Use
  Company Number: None

PATIENT
  Age: 66 Year
  Sex: Female
  Weight: 48.6 kg

DRUGS (1)
  1. ZIOPTAN [Suspect]
     Active Substance: TAFLUPROST
     Indication: INTRAOCULAR PRESSURE INCREASED
     Dosage: ?          QUANTITY:1 DROP(S);?
     Route: 047
     Dates: start: 20160801, end: 20161015

REACTIONS (9)
  - Arthralgia [None]
  - Blood potassium decreased [None]
  - Myalgia [None]
  - Muscular weakness [None]
  - Liver disorder [None]
  - Musculoskeletal chest pain [None]
  - Photophobia [None]
  - Pain in extremity [None]
  - Conjunctival haemorrhage [None]
